FAERS Safety Report 18099887 (Version 2)
Quarter: 2020Q3

REPORT INFORMATION
  Report Type: Spontaneous
  Country: AT (occurrence: AT)
  Receive Date: 20200731
  Receipt Date: 20200803
  Transmission Date: 20201103
  Serious: Yes (Hospitalization)
  Sender: FDA-Public Use
  Company Number: AT-JNJFOC-20200735541

PATIENT
  Sex: Male
  Weight: 103 kg

DRUGS (7)
  1. LASILACTONE [Concomitant]
     Active Substance: FUROSEMIDE\SPIRONOLACTONE
     Dosage: 20/50MG
     Route: 065
  2. YOMOGI [Concomitant]
     Route: 065
  3. BUDOSAN [Concomitant]
     Active Substance: BUDESONIDE
     Route: 065
  4. ACICLOBENE                         /00587301/ [Concomitant]
     Route: 065
  5. AUGMENTIN [Concomitant]
     Active Substance: AMOXICILLIN\CLAVULANATE POTASSIUM
     Route: 065
     Dates: start: 20200711
  6. STELARA [Suspect]
     Active Substance: USTEKINUMAB
     Route: 058
  7. STELARA [Suspect]
     Active Substance: USTEKINUMAB
     Indication: CROHN^S DISEASE
     Dosage: 6MG/KG BODY WEIGHT
     Route: 042
     Dates: start: 20200623

REACTIONS (3)
  - Liver function test abnormal [Unknown]
  - Erysipelas [Recovered/Resolved]
  - Oral herpes [Unknown]

NARRATIVE: CASE EVENT DATE: 202007
